FAERS Safety Report 9808415 (Version 1)
Quarter: 2014Q1

REPORT INFORMATION
  Report Type: Spontaneous
  Country: US (occurrence: US)
  Receive Date: 20140110
  Receipt Date: 20140110
  Transmission Date: 20141002
  Serious: Yes (Death)
  Sender: FDA-Public Use
  Company Number: US-ASTRAZENECA-2014SE01946

PATIENT
  Age: 42 Year
  Sex: Female

DRUGS (5)
  1. QUETIAPINE [Suspect]
     Route: 048
  2. METFORMIN [Suspect]
     Route: 048
  3. VENLAFAXINE [Suspect]
     Route: 048
  4. HALOPERIDOL [Suspect]
     Route: 048
  5. LORAZEPAM [Suspect]
     Route: 048

REACTIONS (3)
  - Toxicity to various agents [Fatal]
  - Completed suicide [Fatal]
  - Cardio-respiratory arrest [Fatal]
